FAERS Safety Report 4454779-3 (Version None)
Quarter: 2004Q3

REPORT INFORMATION
  Report Type: 
  Country: None (occurrence: None)
  Receive Date: 20040915
  Receipt Date: 20040831
  Transmission Date: 20050211
  Serious: Yes (Hospitalization, Other)
  Sender: FDA-Public Use
  Company Number: WAES 0409PRT00001

PATIENT
  Age: 56 Year
  Sex: Female

DRUGS (1)
  1. FOSAMAX [Suspect]
     Indication: OSTEOPOROSIS PROPHYLAXIS
     Dosage: 70 MG/WKY
     Route: 048
     Dates: start: 20030901, end: 20040801

REACTIONS (5)
  - CHEST PAIN [None]
  - FASCIITIS [None]
  - HYPOKINESIA [None]
  - MYALGIA [None]
  - NODULE [None]
